FAERS Safety Report 6176996-7 (Version None)
Quarter: 2009Q2

REPORT INFORMATION
  Report Type: 
  Country: None (occurrence: None)
  Receive Date: 20090501
  Receipt Date: 20090219
  Transmission Date: 20091009
  Serious: Yes (Hospitalization)
  Sender: FDA-Public Use
  Company Number: US-ALEXION-A200900110

PATIENT
  Sex: Female

DRUGS (8)
  1. SOLIRIS [Suspect]
     Indication: PAROXYSMAL NOCTURNAL HAEMOGLOBINURIA
     Dosage: 600 MG, QW
     Route: 042
     Dates: start: 20081023, end: 20081101
  2. SOLIRIS [Suspect]
     Dosage: 900 MG Q2WKS, UNK
     Route: 042
     Dates: start: 20081120
  3. FOLIC ACID [Concomitant]
     Indication: PAROXYSMAL NOCTURNAL HAEMOGLOBINURIA
     Dosage: 5 MG, QD
     Route: 048
  4. NEUPOGEN [Concomitant]
     Indication: PAROXYSMAL NOCTURNAL HAEMOGLOBINURIA
     Dosage: 480 MCG, QD
  5. HYDROCODONE BITARTRATE [Concomitant]
     Dosage: UNK
     Route: 048
  6. PREDNISONE [Concomitant]
     Indication: PAROXYSMAL NOCTURNAL HAEMOGLOBINURIA
     Dosage: 5 MG, QOD
     Route: 048
  7. WELCHOL [Concomitant]
     Indication: BLOOD CHOLESTEROL
     Dosage: UNK
     Route: 048
  8. FLUCONAZOLE [Concomitant]
     Dosage: 100 MG, QD
     Route: 048

REACTIONS (5)
  - DRUG INEFFECTIVE [None]
  - FEBRILE NEUTROPENIA [None]
  - PSEUDOMONAL BACTERAEMIA [None]
  - SINUSITIS [None]
  - UNEVALUABLE EVENT [None]
